FAERS Safety Report 5029469-9 (Version None)
Quarter: 2006Q2

REPORT INFORMATION
  Report Type: 
  Country: None (occurrence: None)
  Receive Date: 20060620
  Receipt Date: 20060609
  Transmission Date: 20061013
  Serious: Yes (Hospitalization, Other)
  Sender: FDA-Public Use
  Company Number: ES-JNJFOC-20060602226

PATIENT
  Age: 18 Year
  Sex: Female

DRUGS (2)
  1. REMICADE [Suspect]
     Dosage: 5 INFUSIONS
     Route: 042
  2. REMICADE [Suspect]
     Indication: COLITIS
     Route: 042

REACTIONS (2)
  - MENINGITIS LISTERIA [None]
  - PYREXIA [None]
